FAERS Safety Report 22644839 (Version 2)
Quarter: 2023Q2

REPORT INFORMATION
  Report Type: Spontaneous
  Country: US (occurrence: US)
  Receive Date: 20230627
  Receipt Date: 20230627
  Transmission Date: 20230721
  Serious: No
  Sender: FDA-Public Use
  Company Number: US-ABBVIE-5304047

PATIENT
  Sex: Female

DRUGS (1)
  1. THYROID, UNSPECIFIED [Suspect]
     Active Substance: THYROID, UNSPECIFIED
     Indication: Product used for unknown indication

REACTIONS (1)
  - Product dispensing error [Unknown]
